FAERS Safety Report 5126096-X (Version None)
Quarter: 2006Q4

REPORT INFORMATION
  Report Type: 
  Country: None (occurrence: None)
  Receive Date: 20061012
  Receipt Date: 20061004
  Transmission Date: 20070319
  Serious: Yes (Hospitalization, Other)
  Sender: FDA-Public Use
  Company Number: US-JNJFOC-20051005745

PATIENT
  Sex: Female

DRUGS (5)
  1. RISPERDAL [Suspect]
  2. RISPERDAL [Suspect]
  3. RISPERDAL [Suspect]
     Indication: ABNORMAL BEHAVIOUR
  4. CLONIDINE [Concomitant]
  5. CLONIDINE [Concomitant]
     Indication: PSYCHOMOTOR HYPERACTIVITY
     Dosage: SINCE SHE WAS 1.5 YEARS OLD

REACTIONS (5)
  - DIABETES MELLITUS INSULIN-DEPENDENT [None]
  - DYSTONIA [None]
  - PHARYNGITIS [None]
  - SINUSITIS [None]
  - TONSILLITIS [None]
